FAERS Safety Report 6574876-6 (Version None)
Quarter: 2010Q1

REPORT INFORMATION
  Report Type: 
  Country: None (occurrence: None)
  Receive Date: 20100209
  Receipt Date: 20100204
  Transmission Date: 20100710
  Serious: Yes (Other)
  Sender: FDA-Public Use
  Company Number: CHPA2010US01189

PATIENT
  Sex: Male

DRUGS (1)
  1. VOLTAREN [Suspect]
     Dosage: 4 G, QID
     Route: 061
     Dates: start: 20091209

REACTIONS (2)
  - INCORRECT DOSE ADMINISTERED [None]
  - RENAL IMPAIRMENT [None]
